FAERS Safety Report 5001018-0 (Version None)
Quarter: 2006Q2

REPORT INFORMATION
  Report Type: 
  Country: None (occurrence: None)
  Receive Date: 20060512
  Receipt Date: 20060508
  Transmission Date: 20061013
  Serious: Yes (Congenital Anomaly)
  Sender: FDA-Public Use
  Company Number: CA-GLAXOSMITHKLINE-A0605139A

PATIENT
  Sex: Male

DRUGS (2)
  1. PAXIL [Suspect]
     Dosage: 5MG PER DAY
  2. ATIVAN [Concomitant]

REACTIONS (3)
  - CONGENITAL FOOT MALFORMATION [None]
  - DRUG EXPOSURE DURING PREGNANCY [None]
  - SYNDACTYLY [None]
